FAERS Safety Report 9721805 (Version 1)
Quarter: 2013Q4

REPORT INFORMATION
  Report Type: Spontaneous
  Country: US (occurrence: US)
  Receive Date: 20131201
  Receipt Date: 20131201
  Transmission Date: 20140711
  Serious: No
  Sender: FDA-Public Use
  Company Number: US-ABBVIE-13P-163-1156708-00

PATIENT
  Age: 56 Year
  Sex: Male
  Weight: 90.8 kg

DRUGS (5)
  1. ANDROGEL [Suspect]
     Indication: BLOOD TESTOSTERONE DECREASED
     Route: 061
     Dates: start: 2012, end: 20131007
  2. ANDROGEL [Suspect]
     Route: 061
     Dates: start: 20131008
  3. ANDROGEL [Suspect]
     Route: 061
     Dates: start: 2011, end: 2012
  4. ALTACE [Concomitant]
     Indication: HYPERTENSION
  5. HYDROCHLOROTHIAZIDE [Concomitant]
     Indication: HYPERTENSION

REACTIONS (1)
  - Blood testosterone decreased [Unknown]
